FAERS Safety Report 25813328 (Version 3)
Quarter: 2025Q3

REPORT INFORMATION
  Report Type: Spontaneous
  Country: US (occurrence: US)
  Receive Date: 20250917
  Receipt Date: 20250930
  Transmission Date: 20251021
  Serious: No
  Sender: PFIZER
  Company Number: US-PFIZER INC-202500183278

PATIENT
  Age: 41 Year
  Sex: Female

DRUGS (4)
  1. LITFULO [Suspect]
     Active Substance: RITLECITINIB TOSYLATE
     Indication: Trichotillomania
     Dosage: 50 MG, 1X/DAY
     Route: 048
     Dates: start: 20241001
  2. LITFULO [Suspect]
     Active Substance: RITLECITINIB TOSYLATE
     Indication: Alopecia totalis
  3. OLUMIANT [Concomitant]
     Active Substance: BARICITINIB
     Indication: Trichotillomania
     Dosage: 1 DF, DAILY
  4. OLUMIANT [Concomitant]
     Active Substance: BARICITINIB
     Indication: Alopecia totalis

REACTIONS (2)
  - Therapeutic product effect incomplete [Not Recovered/Not Resolved]
  - Contraindicated product administered [Unknown]
